FAERS Safety Report 15183669 (Version 1)
Quarter: 2018Q3

REPORT INFORMATION
  Report Type: Spontaneous
  Country: US (occurrence: US)
  Receive Date: 20180625
  Receipt Date: 20180625
  Transmission Date: 20181010
  Serious: Yes (Other)
  Sender: FDA-Public Use
  Company Number: None

PATIENT
  Sex: Male

DRUGS (11)
  1. HYDROXYCHLOR [Concomitant]
     Active Substance: HYDROXYCHLOROQUINE
  2. STELARA [Suspect]
     Active Substance: USTEKINUMAB
     Indication: PSORIATIC ARTHROPATHY
     Dosage: ?          OTHER FREQUENCY:Q 3 MONTHS;?
     Route: 058
     Dates: start: 20170921
  3. MORPHINE [Concomitant]
     Active Substance: MORPHINE
  4. METHOTREXATE. [Concomitant]
     Active Substance: METHOTREXATE
  5. TIZANIDINE. [Concomitant]
     Active Substance: TIZANIDINE
  6. LISINOPRIL. [Concomitant]
     Active Substance: LISINOPRIL
  7. CYCLOBENZAPR [Concomitant]
     Active Substance: CYCLOBENZAPRINE
  8. DULOXETINE. [Concomitant]
     Active Substance: DULOXETINE
  9. FOLIC ACID. [Concomitant]
     Active Substance: FOLIC ACID
  10. HYDROMORPHON [Concomitant]
     Active Substance: HYDROMORPHONE
  11. BUT/APAP/CAF [Concomitant]

REACTIONS (2)
  - Poor quality sleep [None]
  - Drug ineffective [None]
